FAERS Safety Report 11230504 (Version 1)
Quarter: 2015Q2

REPORT INFORMATION
  Report Type: Spontaneous
  Country: US (occurrence: None)
  Receive Date: 20150629
  Receipt Date: 20150629
  Transmission Date: 20150821
  Serious: Yes (Other)
  Sender: FDA-Public Use
  Company Number: KAD201506-001923

PATIENT
  Sex: Female

DRUGS (2)
  1. RIBAVIRIN(RIBAVIRIN) [Suspect]
     Active Substance: RIBAVIRIN
  2. INTERFERON [Suspect]
     Active Substance: INTERFERON

REACTIONS (1)
  - Thyroid disorder [None]
